FAERS Safety Report 5031749-8 (Version None)
Quarter: 2006Q2

REPORT INFORMATION
  Report Type: 
  Country: None (occurrence: None)
  Receive Date: 20060616
  Receipt Date: 20060531
  Transmission Date: 20061013
  Serious: Yes (Hospitalization, Other)
  Sender: FDA-Public Use
  Company Number: FR200606000278

PATIENT
  Age: 64 Year
  Sex: Female

DRUGS (1)
  1. EVISTA [Suspect]
     Indication: OSTEOPOROSIS
     Dosage: 60 MG, DAILY (1/D), ORAL
     Route: 048
     Dates: start: 20021001, end: 20060531

REACTIONS (2)
  - CAROTID ARTERY ATHEROMA [None]
  - HEMIANOPIA HETERONYMOUS [None]
